FAERS Safety Report 6923421-1 (Version None)
Quarter: 2010Q3

REPORT INFORMATION
  Report Type: 
  Country: None (occurrence: None)
  Receive Date: 20100813
  Receipt Date: 20100803
  Transmission Date: 20110219
  Serious: Yes (Other)
  Sender: FDA-Public Use
  Company Number: US-PFIZER INC-2010026398

PATIENT
  Sex: Female
  Weight: 66.224 kg

DRUGS (6)
  1. CHANTIX [Suspect]
     Indication: SMOKING CESSATION THERAPY
     Dosage: 1 MG, 2X/DAY
  2. VICODIN [Concomitant]
  3. BENAZEPRIL [Concomitant]
  4. LEVOTHYROXINE SODIUM [Concomitant]
  5. AMBIEN [Concomitant]
  6. PAXIL [Concomitant]

REACTIONS (2)
  - AGITATION [None]
  - HYPERTENSION [None]
